FAERS Safety Report 19434795 (Version 1)
Quarter: 2021Q2

REPORT INFORMATION
  Report Type: Spontaneous
  Country: FR (occurrence: FR)
  Receive Date: 20210617
  Receipt Date: 20210617
  Transmission Date: 20210717
  Serious: Yes (Other)
  Sender: FDA-Public Use
  Company Number: FR-AUROBINDO-AUR-APL-2021-025511

PATIENT
  Age: 51 Year
  Sex: Female

DRUGS (7)
  1. CAPECITABINE FILM COATED TABLET [Suspect]
     Active Substance: CAPECITABINE
     Indication: HER2 POSITIVE BREAST CANCER
     Dosage: 2000 MILLIGRAM, ONCE A DAY
     Route: 065
  2. TRASTUZUMAB. [Suspect]
     Active Substance: TRASTUZUMAB
     Indication: HER2 POSITIVE BREAST CANCER
     Dosage: UNK
     Route: 058
  3. TUCATINIB [Suspect]
     Active Substance: TUCATINIB
     Dosage: 400 MILLIGRAM, ONCE A DAY
     Route: 048
     Dates: start: 20210303
  4. CAPECITABINE FILM COATED TABLET [Suspect]
     Active Substance: CAPECITABINE
     Dosage: 1500 MILLIGRAM, ONCE A DAY
     Route: 048
     Dates: start: 20210303
  5. TYVERB [Concomitant]
     Active Substance: LAPATINIB
     Indication: PRODUCT USED FOR UNKNOWN INDICATION
     Dosage: 50 MILLIGRAM
     Route: 048
  6. TUCATINIB [Suspect]
     Active Substance: TUCATINIB
     Indication: HER2 POSITIVE BREAST CANCER
     Dosage: 600 MILLIGRAM, ONCE A DAY
     Route: 048
     Dates: start: 20210120, end: 20210127
  7. IRBESARTAN. [Concomitant]
     Active Substance: IRBESARTAN
     Indication: PRODUCT USED FOR UNKNOWN INDICATION
     Dosage: UNK (1/2 TABLET)
     Route: 048

REACTIONS (2)
  - Eczema [Recovered/Resolved]
  - Botryomycosis [Recovered/Resolved]

NARRATIVE: CASE EVENT DATE: 20210127
